FAERS Safety Report 13274621 (Version 1)
Quarter: 2017Q1

REPORT INFORMATION
  Report Type: Spontaneous
  Country: FR (occurrence: FR)
  Receive Date: 20170227
  Receipt Date: 20170227
  Transmission Date: 20170428
  Serious: Yes (Other)
  Sender: FDA-Public Use
  Company Number: FR-GLAXOSMITHKLINE-FR2017GSK025726

PATIENT
  Age: 1 Year
  Sex: Male
  Weight: 11 kg

DRUGS (2)
  1. FLIXOTIDE [Suspect]
     Active Substance: FLUTICASONE PROPIONATE
     Dosage: 100 ?G, BID
     Dates: start: 20161123, end: 20170130
  2. FLIXOTIDE [Suspect]
     Active Substance: FLUTICASONE PROPIONATE
     Indication: ASTHMA
     Dosage: 50 ?G, BID
     Route: 055
     Dates: start: 20161006

REACTIONS (2)
  - Myopathy [Recovering/Resolving]
  - Hypotonia [Recovering/Resolving]

NARRATIVE: CASE EVENT DATE: 20161201
